FAERS Safety Report 21655333 (Version 5)
Quarter: 2023Q1

REPORT INFORMATION
  Report Type: Report from Study
  Country: US (occurrence: US)
  Receive Date: 20221129
  Receipt Date: 20230110
  Transmission Date: 20230418
  Serious: Yes (Hospitalization, Other)
  Sender: FDA-Public Use
  Company Number: US-MALLINCKRODT-T202205667

PATIENT
  Sex: Male

DRUGS (4)
  1. CORTICOTROPIN [Suspect]
     Active Substance: CORTICOTROPIN
     Indication: Nephrotic syndrome
     Dosage: 80 UNITS, ONCE A WEEK
     Route: 030
     Dates: start: 20221009, end: 2022
  2. CORTICOTROPIN [Suspect]
     Active Substance: CORTICOTROPIN
     Dosage: 32 UNITS (WITH BREAKFAST AND SUPPER)
     Route: 065
     Dates: start: 2022, end: 2022
  3. CORTICOTROPIN [Suspect]
     Active Substance: CORTICOTROPIN
     Dosage: 35 UNITS (SUNDAY MONDAY, AND TUESDAY), AND REST OF THE WEEK, TOOK 32 UNITS BOTH MORNING AND EVENING
     Route: 065
     Dates: start: 2022
  4. CYCLOSPORINE [Suspect]
     Active Substance: CYCLOSPORINE
     Indication: Product used for unknown indication
     Dosage: UNK
     Route: 065

REACTIONS (12)
  - Oedema [Recovered/Resolved]
  - Diabetes mellitus [Not Recovered/Not Resolved]
  - Renal impairment [Not Recovered/Not Resolved]
  - Diabetic retinopathy [Not Recovered/Not Resolved]
  - Pain in extremity [Not Recovered/Not Resolved]
  - Eye inflammation [Not Recovered/Not Resolved]
  - Blood pressure increased [Unknown]
  - Injection site haemorrhage [Unknown]
  - Injection site extravasation [Recovered/Resolved]
  - Decreased appetite [Not Recovered/Not Resolved]
  - Therapeutic product effect incomplete [Unknown]
  - Wrong technique in product usage process [Unknown]

NARRATIVE: CASE EVENT DATE: 20220101
